FAERS Safety Report 17522473 (Version 1)
Quarter: 2020Q1

REPORT INFORMATION
  Report Type: Spontaneous
  Country: US (occurrence: US)
  Receive Date: 20200310
  Receipt Date: 20200310
  Transmission Date: 20200409
  Serious: Yes (Hospitalization)
  Sender: FDA-Public Use
  Company Number: US-SA-2020SA058061

PATIENT
  Age: 77 Year
  Sex: Male

DRUGS (1)
  1. LANTUS SOLOSTAR [Suspect]
     Active Substance: INSULIN GLARGINE
     Indication: TYPE 2 DIABETES MELLITUS
     Dosage: 20 OR 21 UNITS AT BEDTIME (HS)
     Route: 065

REACTIONS (4)
  - Walking aid user [Unknown]
  - Product storage error [Unknown]
  - Hospitalisation [Unknown]
  - Rehabilitation therapy [Unknown]
